FAERS Safety Report 15933255 (Version 1)
Quarter: 2019Q1

REPORT INFORMATION
  Report Type: Spontaneous
  Country: US (occurrence: US)
  Receive Date: 20190207
  Receipt Date: 20190207
  Transmission Date: 20190417
  Serious: No
  Sender: FDA-Public Use
  Company Number: US-AMNEAL PHARMACEUTICALS-2017AMN01053

PATIENT
  Sex: Male

DRUGS (2)
  1. PHENERGAN INJECTION [Concomitant]
  2. PROMETHAZINE HYDROCHLORIDE. [Suspect]
     Active Substance: PROMETHAZINE HYDROCHLORIDE

REACTIONS (4)
  - Emotional poverty [Unknown]
  - Emotional disorder [Unknown]
  - Hallucination [Unknown]
  - Depressed mood [Unknown]
